FAERS Safety Report 7265160-6 (Version None)
Quarter: 2011Q1

REPORT INFORMATION
  Report Type: 
  Country: None (occurrence: None)
  Receive Date: 20110131
  Receipt Date: 20110127
  Transmission Date: 20110831
  Serious: Yes (Death, Hospitalization)
  Sender: FDA-Public Use
  Company Number: PHHY2011AR06162

PATIENT
  Sex: Male

DRUGS (1)
  1. EXELON [Suspect]
     Indication: AMNESIA
     Dosage: 1 DF, QD
     Route: 062
     Dates: start: 20110105, end: 20110111

REACTIONS (2)
  - ACUTE MYOCARDIAL INFARCTION [None]
  - CARDIO-RESPIRATORY ARREST [None]
